FAERS Safety Report 12009690 (Version 1)
Quarter: 2016Q1

REPORT INFORMATION
  Report Type: Report from Study
  Country: US (occurrence: US)
  Receive Date: 20160205
  Receipt Date: 20160205
  Transmission Date: 20160526
  Serious: Yes (Other)
  Sender: FDA-Public Use
  Company Number: US-ROCHE-1705836

PATIENT
  Sex: Male

DRUGS (1)
  1. LUCENTIS [Suspect]
     Active Substance: RANIBIZUMAB
     Indication: DIABETIC RETINAL OEDEMA
     Dosage: DATE OF LAST DOSE OF RANIBIZUMAB: 01/MAY/2014
     Route: 050
     Dates: start: 20090528, end: 20160105

REACTIONS (11)
  - Diabetic retinopathy [Unknown]
  - Visual acuity reduced [Unknown]
  - Vision blurred [Unknown]
  - Visual impairment [Unknown]
  - Aneurysm [Unknown]
  - Cataract cortical [Unknown]
  - Vitreous detachment [Unknown]
  - Vitreous haemorrhage [Unknown]
  - Eye haemorrhage [Unknown]
  - Cataract nuclear [Unknown]
  - Macular fibrosis [Unknown]
